FAERS Safety Report 11448600 (Version 3)
Quarter: 2016Q1

REPORT INFORMATION
  Report Type: Spontaneous
  Country: US (occurrence: US)
  Receive Date: 20150902
  Receipt Date: 20160204
  Transmission Date: 20160525
  Serious: Yes (Death, Hospitalization, Other)
  Sender: FDA-Public Use
  Company Number: US-009507513-1509USA000502

PATIENT
  Sex: Male
  Weight: 53.97 kg

DRUGS (1)
  1. JANUVIA [Suspect]
     Active Substance: SITAGLIPTIN PHOSPHATE
     Indication: TYPE 2 DIABETES MELLITUS
     Dosage: 100 MG, QD
     Route: 048
     Dates: start: 20090319, end: 20100104

REACTIONS (13)
  - Endocarditis [Unknown]
  - Hypertension [Unknown]
  - Head injury [Unknown]
  - Hyperlipidaemia [Unknown]
  - Adenocarcinoma pancreas [Unknown]
  - Death [Fatal]
  - Mitral valve prolapse [Unknown]
  - Hyperhidrosis [Unknown]
  - Diarrhoea [Unknown]
  - Drug ineffective [Unknown]
  - Atrial tachycardia [Unknown]
  - Nausea [Unknown]
  - Radiotherapy [Unknown]

NARRATIVE: CASE EVENT DATE: 20090610
